FAERS Safety Report 15406614 (Version 1)
Quarter: 2018Q3

REPORT INFORMATION
  Report Type: Spontaneous
  Country: US (occurrence: US)
  Receive Date: 20180919
  Receipt Date: 20180919
  Transmission Date: 20181010
  Serious: No
  Sender: FDA-Public Use
  Company Number: None

PATIENT
  Age: 74 Year
  Sex: Female
  Weight: 94.35 kg

DRUGS (7)
  1. OMEPRAZOLE, 40MG  / SWITCH OFF WITH RONITIDINE (ZANTAC) [Concomitant]
  2. 81 ASPIRIN [Concomitant]
  3. VIT B12 + B COMPLEX [Concomitant]
  4. CALCIUM + D + POTASSIUM [Concomitant]
  5. TUMERIC [Concomitant]
     Active Substance: HERBALS\TURMERIC
  6. PREDNISONE 5MG [Suspect]
     Active Substance: PREDNISONE
     Indication: PRODUCT USED FOR UNKNOWN INDICATION
     Dosage: 1ST DAY 6 TABLETS THEN 3 A DAY /6TH DY  ?1 BREFAST?1 LUNCH 1 BEDTIME  BY MOUTH
     Route: 048
     Dates: start: 20180711, end: 20180714
  7. CLOBETASOL [Concomitant]
     Active Substance: CLOBETASOL

REACTIONS (1)
  - Migraine [None]

NARRATIVE: CASE EVENT DATE: 20180814
